FAERS Safety Report 12663251 (Version 1)
Quarter: 2016Q3

REPORT INFORMATION
  Report Type: Spontaneous
  Country: US (occurrence: None)
  Receive Date: 20160817
  Receipt Date: 20160817
  Transmission Date: 20161109
  Serious: Yes (Disabling)
  Sender: FDA-Public Use
  Company Number: None

PATIENT
  Age: 63 Year
  Sex: Female
  Weight: 76.2 kg

DRUGS (20)
  1. VITAMIN C [Concomitant]
     Active Substance: ASCORBIC ACID
  2. MYRBETRIQ [Suspect]
     Active Substance: MIRABEGRON
     Indication: URINARY INCONTINENCE
     Dosage: IN THE MORNING
     Route: 048
  3. COQ10 [Concomitant]
     Active Substance: UBIDECARENONE
  4. NAPROXEN. [Concomitant]
     Active Substance: NAPROXEN
  5. VITAMIN D [Concomitant]
     Active Substance: CHOLECALCIFEROL
  6. LORATIDINE [Concomitant]
     Active Substance: LORATADINE
  7. ZINC [Concomitant]
     Active Substance: ZINC\ZINC CHLORIDE
  8. TEA [Concomitant]
     Active Substance: TEA LEAF
  9. SEROQUEL [Concomitant]
     Active Substance: QUETIAPINE FUMARATE
  10. RASPBERRY TEA [Concomitant]
  11. BENZTROPINE [Concomitant]
     Active Substance: BENZTROPINE
  12. PRISTIQ EXTENDED-RELEASE [Concomitant]
     Active Substance: DESVENLAFAXINE SUCCINATE
  13. NUVIGIL [Concomitant]
     Active Substance: ARMODAFINIL
  14. VITAMIN E [Concomitant]
     Active Substance: .ALPHA.-TOCOPHEROL
  15. BI-PAP MACHINE [Concomitant]
     Active Substance: DEVICE
  16. TRIBENZOR [Concomitant]
     Active Substance: AMLODIPINE BESYLATE\HYDROCHLOROTHIAZIDE\OLMESARTAN MEDOXOMIL
  17. VITAMIN B COMPLEX [Concomitant]
     Active Substance: CYANOCOBALAMIN\DEXPANTHENOL\NIACINAMIDE\PYRIDOXINE HYDROCHLORIDE\RIBOFLAVIN 5^-PHOSPHATE SODIUM\THIAMINE HYDROCHLORIDE\VITAMIN B COMPLEX
  18. TYLENOL [Concomitant]
     Active Substance: ACETAMINOPHEN
  19. CHIA TEA [Concomitant]
  20. MAGNESIUM OIL [Concomitant]

REACTIONS (2)
  - Urinary tract infection [None]
  - Product substitution issue [None]

NARRATIVE: CASE EVENT DATE: 20160126
